FAERS Safety Report 22336638 (Version 1)
Quarter: 2023Q2

REPORT INFORMATION
  Report Type: Spontaneous
  Country: US (occurrence: None)
  Receive Date: 20230518
  Receipt Date: 20230518
  Transmission Date: 20230721
  Serious: No
  Sender: FDA-Public Use
  Company Number: US-ROCHE-3195834

PATIENT
  Age: 76 Year
  Sex: Female

DRUGS (19)
  1. ACTEMRA [Suspect]
     Active Substance: TOCILIZUMAB
     Indication: Idiopathic pulmonary fibrosis
     Dosage: 162MG/ 0.9ML
     Route: 058
  2. ACTEMRA [Suspect]
     Active Substance: TOCILIZUMAB
  3. ACTEMRA [Suspect]
     Active Substance: TOCILIZUMAB
  4. OFEV [Suspect]
     Active Substance: NINTEDANIB
     Indication: Product used for unknown indication
     Route: 065
  5. BACTRIM [Concomitant]
     Active Substance: SULFAMETHOXAZOLE\TRIMETHOPRIM
     Dosage: 800-160 MG
  6. CEPHALEXIN [Concomitant]
     Active Substance: CEPHALEXIN
  7. PREVACID 24 HR [Concomitant]
     Active Substance: LANSOPRAZOLE
  8. AZULFIDINE [Concomitant]
     Active Substance: SULFASALAZINE
  9. CELEBREX [Concomitant]
     Active Substance: CELECOXIB
  10. CLOBETASOL [Concomitant]
     Active Substance: CLOBETASOL
  11. COENZYME Q10 [Concomitant]
     Active Substance: DIETARY SUPPLEMENT\UBIDECARENONE
  12. LEVOTHYROXINE [Concomitant]
     Active Substance: LEVOTHYROXINE
  13. LEXAPRO [Concomitant]
     Active Substance: ESCITALOPRAM OXALATE
  14. MAGNESIUM [Concomitant]
     Active Substance: MAGNESIUM
  15. MINERALS\VITAMINS [Concomitant]
     Active Substance: MINERALS\VITAMINS
  16. OMEGA 3 [Concomitant]
     Active Substance: CAPSAICIN
  17. THERATEARS [Concomitant]
     Active Substance: CARBOXYMETHYLCELLULOSE SODIUM
  18. HERBALS\TURMERIC [Concomitant]
     Active Substance: HERBALS\TURMERIC
  19. VITAMIN D3 [Concomitant]
     Active Substance: CHOLECALCIFEROL

REACTIONS (6)
  - Diarrhoea [Unknown]
  - Dyspnoea [Unknown]
  - Chest discomfort [Unknown]
  - Back pain [Unknown]
  - Nausea [Unknown]
  - Platelet count decreased [Unknown]

NARRATIVE: CASE EVENT DATE: 20220925
